FAERS Safety Report 9844059 (Version 1)
Quarter: 2014Q1

REPORT INFORMATION
  Report Type: Spontaneous
  Country: US (occurrence: US)
  Receive Date: 20140127
  Receipt Date: 20140127
  Transmission Date: 20141002
  Serious: Yes (Hospitalization, Other)
  Sender: FDA-Public Use
  Company Number: US-AMGEN-USASP2014003847

PATIENT
  Age: 5 Year
  Sex: Female

DRUGS (11)
  1. EPOGEN [Suspect]
     Indication: RENAL FAILURE CHRONIC
     Dosage: 2800 UNIT, QWK
     Route: 058
  2. METHYLPREDNISOLONE [Concomitant]
     Indication: ANTI-GLOMERULAR BASEMENT MEMBRANE ANTIBODY
     Dosage: UNK
  3. CYCLOPHOSPHAMIDE [Concomitant]
     Indication: ANTI-GLOMERULAR BASEMENT MEMBRANE ANTIBODY
     Dosage: UNK
  4. INFLIXIMAB [Concomitant]
     Indication: ANTI-GLOMERULAR BASEMENT MEMBRANE ANTIBODY
     Dosage: UNK
  5. RITUXIMAB [Concomitant]
     Indication: ANTI-GLOMERULAR BASEMENT MEMBRANE ANTIBODY
     Dosage: UNK
  6. FERROUS SULFATE [Concomitant]
     Dosage: UNK
     Route: 048
  7. ENALAPRIL [Concomitant]
     Dosage: UNK
  8. CALCITRIOL [Concomitant]
     Dosage: UNK
  9. CALCIUM CARBONATE [Concomitant]
     Dosage: UNK
  10. LANSOPRAZOLE [Concomitant]
     Dosage: UNK
  11. FOLIC ACID [Concomitant]
     Dosage: UNK

REACTIONS (5)
  - Anaemia [Unknown]
  - Aplasia pure red cell [Unknown]
  - Anti-erythropoietin antibody positive [Unknown]
  - Haematocrit decreased [Unknown]
  - Pallor [Unknown]
